FAERS Safety Report 8953134 (Version 3)
Quarter: 2013Q1

REPORT INFORMATION
  Report Type: Spontaneous
  Country: IT (occurrence: IT)
  Receive Date: 20121206
  Receipt Date: 20130315
  Transmission Date: 20140127
  Serious: Yes (Hospitalization)
  Sender: FDA-Public Use
  Company Number: IT-BRISTOL-MYERS SQUIBB COMPANY-17160888

PATIENT
  Age: 78 Year
  Sex: Female

DRUGS (4)
  1. COUMADIN TABS 5 MG [Suspect]
     Indication: ATRIAL FIBRILLATION
     Dosage: INTERRUPT ON 18NOV12?RESTART WITH THEN 1/2 TAB OF COUMADIN
     Route: 048
     Dates: start: 19980325, end: 20121118
  2. CORDARONE [Concomitant]
     Dosage: TABS
  3. LASIX [Concomitant]
     Dosage: TABS
  4. COTAREG [Concomitant]
     Dosage: COTAREG ^TAB

REACTIONS (2)
  - Injury [Recovering/Resolving]
  - Fall [Unknown]
